FAERS Safety Report 18774728 (Version 1)
Quarter: 2021Q1

REPORT INFORMATION
  Report Type: Spontaneous
  Country: US (occurrence: US)
  Receive Date: 20210122
  Receipt Date: 20210122
  Transmission Date: 20210419
  Serious: No
  Sender: FDA-Public Use
  Company Number: US-SA-2021SA019753

PATIENT
  Age: 72 Year
  Sex: Male

DRUGS (3)
  1. JANVIA [Concomitant]
  2. LANTUS SOLOSTAR [Suspect]
     Active Substance: INSULIN GLARGINE
     Indication: TYPE 2 DIABETES MELLITUS
     Dosage: 6 IU, QD
     Route: 065
     Dates: start: 20210107
  3. METFORMIN [Concomitant]
     Active Substance: METFORMIN HYDROCHLORIDE

REACTIONS (2)
  - Expired product administered [Unknown]
  - Product storage error [Unknown]

NARRATIVE: CASE EVENT DATE: 202101
